FAERS Safety Report 5253172-3 (Version None)
Quarter: 2007Q1

REPORT INFORMATION
  Report Type: 
  Country: None (occurrence: None)
  Receive Date: 20070301
  Receipt Date: 20070219
  Transmission Date: 20070707
  Serious: Yes (Disabling, Other)
  Sender: FDA-Public Use
  Company Number: PHEH2004US07655

PATIENT
  Sex: Female

DRUGS (4)
  1. ESTRADERM [Suspect]
     Indication: HORMONE REPLACEMENT THERAPY
  2. ESTRATAB [Suspect]
  3. PROVERA [Suspect]
  4. BELLERGAL [Concomitant]

REACTIONS (26)
  - ANTINUCLEAR ANTIBODY POSITIVE [None]
  - ANXIETY [None]
  - BIOPSY BREAST [None]
  - BREAST CANCER [None]
  - BREAST CYST [None]
  - BREAST DISORDER [None]
  - BREAST ENLARGEMENT [None]
  - BREAST MASS [None]
  - CARDIOMEGALY [None]
  - CHEMOTHERAPY [None]
  - COLLAGEN-VASCULAR DISEASE [None]
  - EMOTIONAL DISTRESS [None]
  - HEADACHE [None]
  - HOT FLUSH [None]
  - HYSTEROSALPINGO-OOPHORECTOMY [None]
  - INJURY [None]
  - METASTASES TO LYMPH NODES [None]
  - MYOMECTOMY [None]
  - NEUTROPENIA [None]
  - NIGHT SWEATS [None]
  - OSTEONECROSIS [None]
  - PYREXIA [None]
  - RADIOTHERAPY [None]
  - SCAR [None]
  - SKIN IRRITATION [None]
  - UTERINE LEIOMYOMA [None]
